FAERS Safety Report 15853849 (Version 1)
Quarter: 2019Q1

REPORT INFORMATION
  Report Type: Spontaneous
  Country: US (occurrence: US)
  Receive Date: 20190121
  Receipt Date: 20190121
  Transmission Date: 20190417
  Serious: Yes (Death)
  Sender: FDA-Public Use
  Company Number: None

PATIENT
  Age: 71 Year
  Sex: Male
  Weight: 110.7 kg

DRUGS (18)
  1. CARDURA [Concomitant]
     Active Substance: DOXAZOSIN MESYLATE
  2. ZESTRIL [Concomitant]
     Active Substance: LISINOPRIL
  3. LASIX [Concomitant]
     Active Substance: FUROSEMIDE
  4. LOVASTATIN. [Concomitant]
     Active Substance: LOVASTATIN
  5. SINEMET [Concomitant]
     Active Substance: CARBIDOPA\LEVODOPA
  6. PLAVIX [Concomitant]
     Active Substance: CLOPIDOGREL BISULFATE
  7. PROCRIT [Concomitant]
     Active Substance: ERYTHROPOIETIN
  8. PROSCAR [Concomitant]
     Active Substance: FINASTERIDE
  9. TYLENOL #2 [Concomitant]
  10. LANTUS [Concomitant]
     Active Substance: INSULIN GLARGINE
  11. BYETTA [Concomitant]
     Active Substance: EXENATIDE
  12. POTASSIUM CHLORIDE. [Concomitant]
     Active Substance: POTASSIUM CHLORIDE
  13. IMATINIB. [Suspect]
     Active Substance: IMATINIB MESYLATE
     Indication: MONOCLONAL GAMMOPATHY
     Route: 048
     Dates: start: 20181018
  14. HUMALOG [Concomitant]
     Active Substance: INSULIN LISPRO
  15. NORVASC [Concomitant]
     Active Substance: AMLODIPINE BESYLATE
  16. ASPIRIN. [Concomitant]
     Active Substance: ASPIRIN
  17. COREG [Concomitant]
     Active Substance: CARVEDILOL
  18. NITROGLYCERIN. [Concomitant]
     Active Substance: NITROGLYCERIN

REACTIONS (1)
  - Death [None]

NARRATIVE: CASE EVENT DATE: 20190121
